FAERS Safety Report 12743860 (Version 1)
Quarter: 2016Q3

REPORT INFORMATION
  Report Type: Spontaneous
  Country: CN (occurrence: CN)
  Receive Date: 20160914
  Receipt Date: 20160914
  Transmission Date: 20161109
  Serious: Yes (Other)
  Sender: FDA-Public Use
  Company Number: PHHY2016CN118412

PATIENT
  Age: 2 Year
  Sex: Male
  Weight: 13 kg

DRUGS (3)
  1. CARBAMAZEPINE. [Suspect]
     Active Substance: CARBAMAZEPINE
     Indication: HYPOFIBRINOGENAEMIA
     Dosage: 25 MG, BID
     Route: 048
  2. CARBAMAZEPINE. [Suspect]
     Active Substance: CARBAMAZEPINE
     Dosage: 250 MG, QD; 19.2 MG/KG/D
     Route: 048
  3. URSODEOXYCHOLIC ACID [Suspect]
     Active Substance: URSODIOL
     Indication: HYPOFIBRINOGENAEMIA
     Dosage: 20 MG/KG/D, DIVIDED TWICE
     Route: 065

REACTIONS (4)
  - Product use issue [Unknown]
  - Therapeutic response decreased [Unknown]
  - Toxicity to various agents [Not Recovered/Not Resolved]
  - Gamma-glutamyltransferase increased [Not Recovered/Not Resolved]
